FAERS Safety Report 25603650 (Version 4)
Quarter: 2025Q4

REPORT INFORMATION
  Report Type: Report from Study
  Country: JP (occurrence: JP)
  Receive Date: 20250725
  Receipt Date: 20251010
  Transmission Date: 20260118
  Serious: Yes (Hospitalization, Other)
  Sender: TAKEDA
  Company Number: JP-TAKEDA-2025TJP007375

PATIENT
  Age: 74 Year
  Sex: Female

DRUGS (1)
  1. FRUQUINTINIB [Suspect]
     Active Substance: FRUQUINTINIB
     Indication: Product used for unknown indication
     Dosage: 5 MILLIGRAM
     Dates: start: 20250702, end: 20250715

REACTIONS (2)
  - Proteinuria [Unknown]
  - Abdominal infection [Recovering/Resolving]

NARRATIVE: CASE EVENT DATE: 20250718
